FAERS Safety Report 9871026 (Version 1)
Quarter: 2014Q1

REPORT INFORMATION
  Report Type: Spontaneous
  Country: US (occurrence: US)
  Receive Date: 20140205
  Receipt Date: 20140205
  Transmission Date: 20141002
  Serious: Yes (Hospitalization, Other)
  Sender: FDA-Public Use
  Company Number: US-AMGEN-USASP2014007846

PATIENT
  Age: 62 Year
  Sex: Female

DRUGS (2)
  1. ENBREL [Suspect]
     Indication: RHEUMATOID ARTHRITIS
     Dosage: UNK
     Route: 065
     Dates: start: 20130723
  2. METHOTREXATE [Concomitant]
     Dosage: UNK

REACTIONS (4)
  - Loss of consciousness [Unknown]
  - Sepsis [Unknown]
  - Pneumonia [Unknown]
  - Malaise [Not Recovered/Not Resolved]
